FAERS Safety Report 20059693 (Version 1)
Quarter: 2021Q4

REPORT INFORMATION
  Report Type: Spontaneous
  Country: BR (occurrence: BR)
  Receive Date: 20211111
  Receipt Date: 20211111
  Transmission Date: 20220303
  Serious: Yes (Hospitalization)
  Sender: FDA-Public Use
  Company Number: None

PATIENT
  Age: 54 Year
  Sex: Female

DRUGS (3)
  1. KEYTRUDA [Suspect]
     Active Substance: PEMBROLIZUMAB
     Indication: Product used for unknown indication
     Dosage: 200 MILLIGRAM, 21 IN 21 DAYS (1 PER 21 DAY)
     Route: 042
     Dates: start: 20190301
  2. ALIMTA [Suspect]
     Active Substance: PEMETREXED DISODIUM
     Indication: Product used for unknown indication
     Dosage: 870 MILLIGRAM, 21 IN 21 DAYS (1 PER 21 DAY)
     Route: 042
     Dates: start: 20190816
  3. ALIMTA [Suspect]
     Active Substance: PEMETREXED DISODIUM
     Dosage: 870 MILLIGRAM, 21 IN 21 DAYS (1 PER 21 DAY)
     Route: 042
     Dates: start: 20190816

REACTIONS (2)
  - Pain [Recovered/Resolved]
  - Taste disorder [Recovered/Resolved]

NARRATIVE: CASE EVENT DATE: 20190815
